FAERS Safety Report 9156972 (Version 1)
Quarter: 2013Q1

REPORT INFORMATION
  Report Type: Spontaneous
  Country: HR (occurrence: None)
  Receive Date: 20130212
  Receipt Date: 20130212
  Transmission Date: 20140127
  Serious: Yes (Other)
  Sender: FDA-Public Use
  Company Number: 7191326

PATIENT
  Age: 32 Year
  Sex: Female

DRUGS (1)
  1. LEVOTHYROXINE [Suspect]

REACTIONS (8)
  - Maternal exposure during pregnancy [None]
  - Endometritis [None]
  - Sepsis [None]
  - Affect lability [None]
  - Diarrhoea [None]
  - Retained placenta or membranes [None]
  - Sinus tachycardia [None]
  - Hyperthyroidism [None]
